FAERS Safety Report 15549654 (Version 2)
Quarter: 2018Q4

REPORT INFORMATION
  Report Type: Spontaneous
  Country: US (occurrence: US)
  Receive Date: 20181025
  Receipt Date: 20181105
  Transmission Date: 20190205
  Serious: Yes (Hospitalization, Other)
  Sender: FDA-Public Use
  Company Number: US-AUROBINDO-AUR-APL-2018-051090

PATIENT
  Age: 44 Year
  Sex: Male

DRUGS (4)
  1. MYCOPHENOLATE MOFETIL. [Suspect]
     Active Substance: MYCOPHENOLATE MOFETIL
     Dosage: WAS TITRATED UP TO 1500 MG TWICE DAILY
     Route: 065
  2. MYCOPHENOLATE MOFETIL. [Suspect]
     Active Substance: MYCOPHENOLATE MOFETIL
     Indication: DERMATITIS CONTACT
     Dosage: 1500 MILLIGRAM
     Route: 065
  3. PREDNISONE. [Suspect]
     Active Substance: PREDNISONE
     Dosage: 6 MILLIGRAM
     Route: 065
  4. PREDNISONE. [Suspect]
     Active Substance: PREDNISONE
     Indication: DERMATITIS CONTACT
     Dosage: 40 TO 60 MG, DAILY
     Route: 065

REACTIONS (10)
  - Cellulitis [Recovering/Resolving]
  - Oesophageal candidiasis [Recovered/Resolved]
  - Cataract [Recovered/Resolved]
  - Weight increased [Recovered/Resolved]
  - Depression [Recovered/Resolved]
  - Infection [Recovered/Resolved]
  - Toxicity to various agents [Recovered/Resolved]
  - Sepsis [Recovered/Resolved]
  - Pneumonia [Recovered/Resolved]
  - Osteoporosis [Recovered/Resolved]
